FAERS Safety Report 4903660-1 (Version None)
Quarter: 2006Q1

REPORT INFORMATION
  Report Type: 
  Country: None (occurrence: None)
  Receive Date: 20060203
  Receipt Date: 20060123
  Transmission Date: 20060701
  Serious: Yes (Other)
  Sender: FDA-Public Use
  Company Number: 2005026581

PATIENT
  Age: 87 Year
  Sex: Male
  Weight: 107.0489 kg

DRUGS (14)
  1. VIAGRA [Suspect]
     Indication: ANORGASMIA
     Dosage: (50 MG)
     Dates: start: 20050201, end: 20050201
  2. TRAVATAN [Suspect]
     Indication: ILL-DEFINED DISORDER
     Dosage: DAILY INTERVAL: EVERY DAY), OPHTHALMIC
     Route: 047
     Dates: start: 20040212, end: 20040526
  3. AZOPT [Suspect]
     Indication: ILL-DEFINED DISORDER
     Dosage: (2 IN 1 D), OPHTHALMIC
     Route: 047
     Dates: start: 20040526, end: 20041208
  4. EXTRA STRENGTH TYLENOL [Concomitant]
  5. TERAZOSIN (TERAZOSIN) [Concomitant]
  6. ASPIRIN [Concomitant]
  7. RANITIDINE HCL [Concomitant]
  8. IMODIUM ADVANCED [Concomitant]
  9. MECLIZINE [Concomitant]
  10. ALL OTHER THERAPEUTIC PRODUCTS [Concomitant]
  11. HYDROCORTISONE [Concomitant]
  12. TYLENOL PM (DIPHENHYDRAMINE, PARACETAMOL) [Concomitant]
  13. CORTISONE ACETATE [Concomitant]
  14. TYLENOL W/ CODEINE NO. 3 [Concomitant]

REACTIONS (7)
  - DIABETES MELLITUS [None]
  - DRUG INEFFECTIVE [None]
  - EYE PRURITUS [None]
  - GLAUCOMA [None]
  - NERVOUSNESS [None]
  - OPTIC NERVE DISORDER [None]
  - PROSTATE CANCER [None]
